FAERS Safety Report 20904432 (Version 2)
Quarter: 2022Q2

REPORT INFORMATION
  Report Type: Report from Study
  Country: US (occurrence: US)
  Receive Date: 20220602
  Receipt Date: 20220610
  Transmission Date: 20220721
  Serious: Yes (Other)
  Sender: FDA-Public Use
  Company Number: US-ABBVIE-22K-163-4415836-00

PATIENT
  Age: 81 Year
  Sex: Male
  Weight: 74.910 kg

DRUGS (8)
  1. HUMIRA [Suspect]
     Active Substance: ADALIMUMAB
     Indication: Vasculitis
     Route: 058
     Dates: start: 201801, end: 20220330
  2. HUMIRA [Suspect]
     Active Substance: ADALIMUMAB
     Indication: Rheumatoid arthritis
  3. MODERNA COVID-19 VACCINE [Concomitant]
     Active Substance: ELASOMERAN
     Indication: COVID-19 immunisation
     Dosage: FIRST DOSE
     Route: 030
     Dates: start: 20210222, end: 20210222
  4. MODERNA COVID-19 VACCINE [Concomitant]
     Active Substance: ELASOMERAN
     Dosage: SECOND DOSE
     Route: 030
     Dates: start: 20210326, end: 20210326
  5. MODERNA COVID-19 VACCINE [Concomitant]
     Active Substance: ELASOMERAN
     Dosage: THIRD DOSE
     Route: 030
     Dates: start: 202110, end: 202110
  6. MODERNA COVID-19 VACCINE [Concomitant]
     Active Substance: ELASOMERAN
     Dosage: FOURTH DOSE
     Route: 030
     Dates: start: 20220505, end: 20220505
  7. PREDNISONE [Concomitant]
     Active Substance: PREDNISONE
     Indication: Pain
  8. PLAQUENIL [Concomitant]
     Active Substance: HYDROXYCHLOROQUINE SULFATE
     Indication: Product used for unknown indication

REACTIONS (4)
  - Lymphadenopathy [Recovered/Resolved]
  - B-cell lymphoma [Not Recovered/Not Resolved]
  - Non-Hodgkin^s lymphoma [Unknown]
  - Gait inability [Unknown]

NARRATIVE: CASE EVENT DATE: 20211201
